FAERS Safety Report 11792512 (Version 1)
Quarter: 2015Q4

REPORT INFORMATION
  Report Type: Spontaneous
  Country: SA (occurrence: SA)
  Receive Date: 20151202
  Receipt Date: 20151202
  Transmission Date: 20160305
  Serious: Yes (Hospitalization, Other)
  Sender: FDA-Public Use
  Company Number: PHHY2015SA155355

PATIENT
  Age: 62 Year

DRUGS (4)
  1. CARBOPLATIN. [Concomitant]
     Active Substance: CARBOPLATIN
     Indication: METASTASES TO PERITONEUM
     Route: 065
  2. PACLITAXEL. [Concomitant]
     Active Substance: PACLITAXEL
     Indication: METASTASES TO PERITONEUM
     Route: 065
  3. DOXORUBICIN [Suspect]
     Active Substance: DOXORUBICIN
     Indication: METASTASES TO PERITONEUM
     Dosage: 15 MG/M2, UNK
     Route: 065
  4. CISPLATIN. [Suspect]
     Active Substance: CISPLATIN
     Indication: METASTASES TO PERITONEUM
     Dosage: 50 MG/M2, UNK
     Route: 065

REACTIONS (4)
  - Anastomotic leak [Unknown]
  - Pleural effusion [Unknown]
  - Intestinal obstruction [Unknown]
  - Hydronephrosis [Unknown]
